FAERS Safety Report 7275294-8 (Version None)
Quarter: 2011Q1

REPORT INFORMATION
  Report Type: 
  Country: None (occurrence: None)
  Receive Date: 20110204
  Receipt Date: 20110201
  Transmission Date: 20110831
  Serious: Yes (Hospitalization)
  Sender: FDA-Public Use
  Company Number: ZA-ROCHE-756067

PATIENT
  Sex: Female
  Weight: 50 kg

DRUGS (1)
  1. ROACUTAN [Suspect]
     Indication: ACNE
     Route: 048
     Dates: start: 20101101, end: 20110121

REACTIONS (3)
  - NAUSEA [None]
  - HEADACHE [None]
  - VOMITING [None]
